FAERS Safety Report 19372029 (Version 3)
Quarter: 2021Q2

REPORT INFORMATION
  Report Type: Spontaneous
  Country: US (occurrence: US)
  Receive Date: 20210604
  Receipt Date: 20210618
  Transmission Date: 20210717
  Serious: Yes (Other)
  Sender: FDA-Public Use
  Company Number: US-BLUEPRINT MEDICINES CORPORATION-SP-US-2021-000759

PATIENT
  Sex: Male

DRUGS (2)
  1. AYVAKIT [Suspect]
     Active Substance: AVAPRITINIB
     Indication: MASTOCYTIC LEUKAEMIA
     Route: 048
     Dates: start: 20210322
  2. AYVAKIT [Suspect]
     Active Substance: AVAPRITINIB
     Route: 048

REACTIONS (5)
  - Haemoglobin decreased [Unknown]
  - Pain in extremity [Unknown]
  - Portal hypertension [Unknown]
  - Peripheral swelling [Unknown]
  - Off label use [Unknown]
